FAERS Safety Report 19295555 (Version 1)
Quarter: 2021Q2

REPORT INFORMATION
  Report Type: Spontaneous
  Country: KR (occurrence: KR)
  Receive Date: 20210524
  Receipt Date: 20210524
  Transmission Date: 20210717
  Serious: Yes (Hospitalization, Other)
  Sender: FDA-Public Use
  Company Number: KR-GLAXOSMITHKLINE-KR2021APC107509

PATIENT
  Age: 37 Year
  Sex: Male
  Weight: 61 kg

DRUGS (1)
  1. ZEFFIX [Suspect]
     Active Substance: LAMIVUDINE
     Indication: PRODUCT USED FOR UNKNOWN INDICATION
     Dosage: 100 MG
     Route: 048

REACTIONS (2)
  - Hepatorenal syndrome [Unknown]
  - Hepatic encephalopathy [Recovered/Resolved]

NARRATIVE: CASE EVENT DATE: 20040901
